FAERS Safety Report 7943348-6 (Version None)
Quarter: 2011Q4

REPORT INFORMATION
  Report Type: 
  Country: None (occurrence: None)
  Receive Date: 20111128
  Receipt Date: 20111125
  Transmission Date: 20120403
  Serious: Yes (Life-Threatening, Hospitalization, Other)
  Sender: FDA-Public Use
  Company Number: PHHY2009FR13285

PATIENT
  Sex: Female

DRUGS (6)
  1. MEDIATOR [Suspect]
     Dosage: 3 DF, QD
     Dates: start: 20020101
  2. LANSOPRAZOLE [Suspect]
     Dosage: UNK
  3. PREDNISONE TAB [Suspect]
     Dosage: UNK
  4. URBANYL [Suspect]
     Dosage: UNK
  5. LIORESAL [Suspect]
     Dosage: UNK
     Route: 048
  6. NEURONTIN [Suspect]
     Dosage: UNK

REACTIONS (6)
  - MITRAL VALVE INCOMPETENCE [None]
  - AORTIC VALVE INCOMPETENCE [None]
  - TRICUSPID VALVE INCOMPETENCE [None]
  - EJECTION FRACTION DECREASED [None]
  - ACUTE PULMONARY OEDEMA [None]
  - MITRAL VALVE STENOSIS [None]
